FAERS Safety Report 15795146 (Version 1)
Quarter: 2019Q1

REPORT INFORMATION
  Report Type: Spontaneous
  Country: US (occurrence: US)
  Receive Date: 20190107
  Receipt Date: 20190107
  Transmission Date: 20190417
  Serious: Yes (Death)
  Sender: FDA-Public Use
  Company Number: US-PFIZER INC-2019007278

PATIENT
  Age: 48 Year
  Sex: Male

DRUGS (3)
  1. PROPANOLOL HCL [Suspect]
     Active Substance: PROPRANOLOL HYDROCHLORIDE
     Dosage: UNK
     Route: 065
  2. LORAZEPAM. [Suspect]
     Active Substance: LORAZEPAM
     Dosage: UNK
     Route: 065
  3. CAFFEINE. [Suspect]
     Active Substance: CAFFEINE
     Dosage: UNK
     Route: 065

REACTIONS (1)
  - Completed suicide [Fatal]

NARRATIVE: CASE EVENT DATE: 2017
